FAERS Safety Report 5625913-4 (Version None)
Quarter: 2008Q1

REPORT INFORMATION
  Report Type: 
  Country: None (occurrence: None)
  Receive Date: 20080213
  Receipt Date: 20080213
  Transmission Date: 20080703
  Serious: Yes (Life-Threatening, Disabling, Other)
  Sender: FDA-Public Use
  Company Number: None

PATIENT
  Age: 31 Year
  Sex: Female
  Weight: 79.3795 kg

DRUGS (1)
  1. CHANTIX [Suspect]
     Indication: SMOKING CESSATION THERAPY
     Dosage: 1MG  2 A DAY  PO
     Route: 048
     Dates: start: 20080101, end: 20080208

REACTIONS (8)
  - ABNORMAL BEHAVIOUR [None]
  - DEPRESSION [None]
  - HEADACHE [None]
  - INSOMNIA [None]
  - INTENTIONAL SELF-INJURY [None]
  - MOOD ALTERED [None]
  - NAUSEA [None]
  - SUICIDAL IDEATION [None]
